FAERS Safety Report 8484413-7 (Version None)
Quarter: 2012Q3

REPORT INFORMATION
  Report Type: 
  Country: None (occurrence: None)
  Receive Date: 20120703
  Receipt Date: 20120629
  Transmission Date: 20120928
  Serious: Yes (Hospitalization)
  Sender: FDA-Public Use
  Company Number: PHHY2012TR055803

PATIENT
  Age: 19 Year
  Sex: Female

DRUGS (2)
  1. CARBAMAZEPINE [Suspect]
     Dosage: 8000 MG, ONCE/SINGLE
  2. CARBAMAZEPINE [Suspect]
     Dosage: UNK UKN, UNK

REACTIONS (9)
  - HEART RATE INCREASED [None]
  - RESPIRATORY RATE INCREASED [None]
  - BLOOD PRESSURE DECREASED [None]
  - SUICIDE ATTEMPT [None]
  - OVERDOSE [None]
  - SUICIDAL IDEATION [None]
  - MYDRIASIS [None]
  - COMA SCALE ABNORMAL [None]
  - ANTICONVULSANT DRUG LEVEL INCREASED [None]
